FAERS Safety Report 21973496 (Version 2)
Quarter: 2023Q2

REPORT INFORMATION
  Report Type: Spontaneous
  Country: US (occurrence: US)
  Receive Date: 20230209
  Receipt Date: 20230412
  Transmission Date: 20230721
  Serious: No
  Sender: FDA-Public Use
  Company Number: US-PFIZER INC-202300059044

PATIENT
  Age: 54 Year
  Sex: Female

DRUGS (12)
  1. IBRANCE [Suspect]
     Active Substance: PALBOCICLIB
     Indication: Breast cancer
     Dosage: 125 MG, CYCLIC (DAILY FOR 21 DAYS EVERY 28 DAYS / 3 WEEKS ON AND 1 WEEK OFF)
     Route: 048
     Dates: start: 202211
  2. ALPRAZOLAM [Concomitant]
     Active Substance: ALPRAZOLAM
  3. DRONABINOL [Concomitant]
     Active Substance: DRONABINOL
  4. FASLODEX [Concomitant]
     Active Substance: FULVESTRANT
  5. FLUOXETINE [Concomitant]
     Active Substance: FLUOXETINE HYDROCHLORIDE
  6. FUROSEMIDE [Concomitant]
     Active Substance: FUROSEMIDE
  7. HYDROMORPHONE [Concomitant]
     Active Substance: HYDROMORPHONE
  8. METOCLOPRAMIDE [Concomitant]
     Active Substance: METOCLOPRAMIDE
  9. ONDANSETRON [Concomitant]
     Active Substance: ONDANSETRON
  10. PEPCID [Concomitant]
     Active Substance: FAMOTIDINE
  11. PROCHLORPERAZINE [Concomitant]
     Active Substance: PROCHLORPERAZINE
  12. XGEVA [Concomitant]
     Active Substance: DENOSUMAB

REACTIONS (7)
  - Fatigue [Not Recovered/Not Resolved]
  - Diarrhoea [Not Recovered/Not Resolved]
  - Oral mucosal blistering [Not Recovered/Not Resolved]
  - Vomiting [Not Recovered/Not Resolved]
  - Bone pain [Not Recovered/Not Resolved]
  - Arthralgia [Not Recovered/Not Resolved]
  - Loose tooth [Not Recovered/Not Resolved]
